FAERS Safety Report 6588328-0 (Version None)
Quarter: 2010Q1

REPORT INFORMATION
  Report Type: 
  Country: None (occurrence: None)
  Receive Date: 20100218
  Receipt Date: 20100209
  Transmission Date: 20100710
  Serious: Yes (Hospitalization)
  Sender: FDA-Public Use
  Company Number: FR-ROCHE-655992

PATIENT
  Sex: Female
  Weight: 64 kg

DRUGS (5)
  1. INTERFERON ALFA [Suspect]
     Dosage: DOSE: 9 MU
     Route: 058
     Dates: start: 20090810
  2. BEVACIZUMAB [Suspect]
     Route: 042
     Dates: start: 20090810
  3. LOXEN [Concomitant]
  4. HYPERIUM [Concomitant]
  5. LEVOTHYROXINE SODIUM [Concomitant]
     Indication: HYPOTHYROIDISM

REACTIONS (2)
  - GENERAL PHYSICAL HEALTH DETERIORATION [None]
  - HYPERKALAEMIA [None]
